FAERS Safety Report 17269878 (Version 2)
Quarter: 2020Q1

REPORT INFORMATION
  Report Type: Spontaneous
  Country: FR (occurrence: FR)
  Receive Date: 20200114
  Receipt Date: 20200213
  Transmission Date: 20200409
  Serious: Yes (Life-Threatening, Other)
  Sender: FDA-Public Use
  Company Number: FR-PFIZER INC-2020012956

PATIENT
  Age: 41 Year
  Sex: Female
  Weight: 74 kg

DRUGS (13)
  1. XELJANZ [Suspect]
     Active Substance: TOFACITINIB CITRATE
     Indication: RHEUMATOID ARTHRITIS
     Dosage: 5 MG, 1X/DAY
     Route: 048
     Dates: start: 20190101, end: 20191223
  2. UVEDOSE [Concomitant]
     Active Substance: CHOLECALCIFEROL
     Dosage: 1 DF, EVERY 3 MONTHS
  3. ARANESP [Concomitant]
     Active Substance: DARBEPOETIN ALFA
     Dosage: 40 UG, EVERY 2 WEEKS
  4. LASILIX [FUROSEMIDE] [Concomitant]
     Active Substance: FUROSEMIDE
     Dosage: 20 MG, UNK
  5. CORTANCYL [Concomitant]
     Active Substance: PREDNISONE
     Dosage: 5 MG, UNK
  6. INEXIUM [ESOMEPRAZOLE MAGNESIUM] [Concomitant]
     Active Substance: ESOMEPRAZOLE MAGNESIUM
     Dosage: 20 MG, 1X/DAY
  7. PLAQUENIL [Concomitant]
     Active Substance: HYDROXYCHLOROQUINE SULFATE
     Dosage: 200 MG, 2X/DAY
  8. KARDEGIC [Concomitant]
     Active Substance: ASPIRIN DL-LYSINE
     Dosage: 75 MG, 1X/DAY
  9. SEROPLEX [Concomitant]
     Active Substance: ESCITALOPRAM OXALATE
     Dosage: 5 MG, 1X/DAY
  10. AMLOR [Concomitant]
     Active Substance: AMLODIPINE BESYLATE
     Dosage: 10 MG, 1X/DAY (IN THE EVENING)
  11. APROVEL [Concomitant]
     Active Substance: IRBESARTAN
     Dosage: 150 MG, 1X/DAY
  12. DAFALGAN [Concomitant]
     Active Substance: ACETAMINOPHEN
     Dosage: 1000 MG, AS NEEDED
  13. GAVISCON [CALCIUM CARBONATE;POTASSIUM BICARBONATE;SODIUM ALGINATE] [Concomitant]
     Dosage: UNK

REACTIONS (3)
  - Contraindicated product administered [Unknown]
  - Pulmonary embolism [Recovering/Resolving]
  - Disease recurrence [Recovering/Resolving]

NARRATIVE: CASE EVENT DATE: 20190101
